FAERS Safety Report 7487263-3 (Version None)
Quarter: 2011Q2

REPORT INFORMATION
  Report Type: 
  Country: None (occurrence: None)
  Receive Date: 20110518
  Receipt Date: 20110503
  Transmission Date: 20111010
  Serious: Yes (Hospitalization)
  Sender: FDA-Public Use
  Company Number: HR-JNJFOC-20110502890

PATIENT
  Age: 21 Year
  Sex: Female

DRUGS (5)
  1. RISPERDONE [Suspect]
     Indication: ACUTE PSYCHOSIS
     Route: 048
     Dates: end: 20110101
  2. ZOLPIDEM [Concomitant]
     Route: 065
  3. RISPERDAL CONSTA [Concomitant]
     Route: 030
  4. RISPERDONE [Suspect]
     Route: 048
     Dates: start: 20100101
  5. DIAZEPAM [Concomitant]
     Route: 065

REACTIONS (2)
  - SCHIZOPHRENIA, PARANOID TYPE [None]
  - TREATMENT NONCOMPLIANCE [None]
